FAERS Safety Report 25495008 (Version 2)
Quarter: 2025Q3

REPORT INFORMATION
  Report Type: Spontaneous
  Country: US (occurrence: US)
  Receive Date: 20250630
  Receipt Date: 20250807
  Transmission Date: 20251021
  Serious: No
  Sender: MYLAN
  Company Number: US-MYLANLABS-2025M1053634

PATIENT
  Age: 55 Year
  Sex: Female

DRUGS (8)
  1. ESTRADIOL [Suspect]
     Active Substance: ESTRADIOL
     Indication: Atrophic vulvovaginitis
     Dosage: UNK, 3XW (3 DAYS A WEEK)
     Dates: start: 20250101, end: 20250308
  2. ESTRADIOL [Suspect]
     Active Substance: ESTRADIOL
     Dosage: UNK, 3XW (3 DAYS A WEEK)
     Dates: start: 20250101, end: 20250308
  3. ESTRADIOL [Suspect]
     Active Substance: ESTRADIOL
     Dosage: UNK, 3XW (3 DAYS A WEEK)
     Route: 065
     Dates: start: 20250101, end: 20250308
  4. ESTRADIOL [Suspect]
     Active Substance: ESTRADIOL
     Dosage: UNK, 3XW (3 DAYS A WEEK)
     Route: 065
     Dates: start: 20250101, end: 20250308
  5. ESTRADIOL [Suspect]
     Active Substance: ESTRADIOL
  6. ESTRADIOL [Suspect]
     Active Substance: ESTRADIOL
  7. ESTRADIOL [Suspect]
     Active Substance: ESTRADIOL
     Route: 065
  8. ESTRADIOL [Suspect]
     Active Substance: ESTRADIOL
     Route: 065

REACTIONS (2)
  - Device use error [Unknown]
  - Device delivery system issue [Unknown]

NARRATIVE: CASE EVENT DATE: 20250101
